FAERS Safety Report 10672471 (Version 1)
Quarter: 2014Q4

REPORT INFORMATION
  Report Type: Spontaneous
  Country: US (occurrence: US)
  Receive Date: 20141223
  Receipt Date: 20141223
  Transmission Date: 20150529
  Serious: No
  Sender: FDA-Public Use
  Company Number: US-BAUSCH-SYM-2014-20481

PATIENT
  Age: 63 Year
  Sex: Male

DRUGS (1)
  1. XENAZINE [Suspect]
     Active Substance: TETRABENAZINE
     Indication: DYSKINESIA
     Dosage: 1 TABLET, 3 TIMES DAILY
     Route: 048
     Dates: start: 20131218

REACTIONS (3)
  - Drooling [Unknown]
  - Bruxism [Unknown]
  - Dysphagia [Unknown]
